FAERS Safety Report 18222196 (Version 3)
Quarter: 2020Q4

REPORT INFORMATION
  Report Type: Report from Study
  Country: IL (occurrence: IL)
  Receive Date: 20200902
  Receipt Date: 20201210
  Transmission Date: 20210113
  Serious: Yes (Hospitalization, Other)
  Sender: FDA-Public Use
  Company Number: IL-GLAXOSMITHKLINE-IL2020EME172133

PATIENT
  Age: 83 Year
  Sex: Female

DRUGS (2)
  1. MEPOLIZUMAB [Suspect]
     Active Substance: MEPOLIZUMAB
     Indication: ASTHMA
     Dosage: 100 MG
  2. MEPOLIZUMAB [Suspect]
     Active Substance: MEPOLIZUMAB
     Dosage: 100 MG, Z, MONTHLY
     Route: 042

REACTIONS (11)
  - Haemoglobin decreased [Unknown]
  - Internal haemorrhage [Unknown]
  - Pelvic bone injury [Unknown]
  - Contusion [Unknown]
  - Anaemia [Unknown]
  - Fall [Unknown]
  - Anxiety [Unknown]
  - Limb injury [Unknown]
  - Gait disturbance [Unknown]
  - Asthma [Unknown]
  - Inappropriate schedule of product administration [Unknown]
